FAERS Safety Report 7063693-9 (Version None)
Quarter: 2010Q4

REPORT INFORMATION
  Report Type: 
  Country: None (occurrence: None)
  Receive Date: 20101026
  Receipt Date: 20101014
  Transmission Date: 20110411
  Serious: Yes (Death)
  Sender: FDA-Public Use
  Company Number: TR-US-EMD SERONO, INC.-7019447

PATIENT
  Sex: Male

DRUGS (10)
  1. REBIF [Suspect]
     Indication: MULTIPLE SCLEROSIS
     Route: 058
     Dates: start: 20040501, end: 20100701
  2. CORASPIN [Concomitant]
     Indication: THROMBOSIS
     Route: 048
  3. FLOMAX [Concomitant]
     Indication: BENIGN PROSTATIC HYPERPLASIA
     Route: 048
  4. LUSTRAL [Concomitant]
     Indication: DEPRESSION
     Route: 048
  5. DILTIAZEM [Concomitant]
     Indication: HYPERTENSION
     Route: 048
  6. DILTIAZEM [Concomitant]
     Indication: ANGINA PECTORIS
  7. NEROX B [Concomitant]
  8. OSMOLAC [Concomitant]
     Indication: CONSTIPATION
  9. METEOSPASMYL [Concomitant]
     Indication: IRRITABLE BOWEL SYNDROME
  10. ASIST SYRUP [Concomitant]

REACTIONS (5)
  - ABDOMINAL DISTENSION [None]
  - CARDIAC ARREST [None]
  - DYSPNOEA [None]
  - RESPIRATORY FAILURE [None]
  - RESPIRATORY TRACT INFECTION [None]
